FAERS Safety Report 5648059-8 (Version None)
Quarter: 2008Q1

REPORT INFORMATION
  Report Type: 
  Country: None (occurrence: None)
  Receive Date: 20080229
  Receipt Date: 20080229
  Transmission Date: 20080703
  Serious: Yes (Life-Threatening, Hospitalization)
  Sender: FDA-Public Use
  Company Number: None

PATIENT
  Age: 55 Year
  Sex: Male
  Weight: 105 kg

DRUGS (1)
  1. CLOPIDOGREL [Suspect]
     Indication: CORONARY ARTERIAL STENT INSERTION
     Dosage: 75MG EVERY DAY PO
     Route: 048
     Dates: start: 20071201, end: 20080127

REACTIONS (7)
  - ANXIETY [None]
  - ASTHENIA [None]
  - CHEST PAIN [None]
  - HAEMOGLOBIN DECREASED [None]
  - MELAENA [None]
  - ORTHOSTATIC HYPOTENSION [None]
  - TREATMENT NONCOMPLIANCE [None]
